FAERS Safety Report 14430999 (Version 6)
Quarter: 2019Q1

REPORT INFORMATION
  Report Type: Report from Study
  Country: US (occurrence: US)
  Receive Date: 20180124
  Receipt Date: 20190228
  Transmission Date: 20190417
  Serious: Yes (Hospitalization, Other)
  Sender: FDA-Public Use
  Company Number: US-TESARO, INC.-US-2018TSO00365

PATIENT
  Age: 69 Year
  Sex: Female

DRUGS (3)
  1. ZEJULA [Suspect]
     Active Substance: NIRAPARIB
     Indication: UTERINE CANCER
     Dosage: 300 MG, QD
     Route: 048
     Dates: start: 20171013
  2. ZEJULA [Suspect]
     Active Substance: NIRAPARIB
     Indication: MALIGNANT PERITONEAL NEOPLASM
     Dosage: 300 MG, PM W/ FOOD
     Route: 048
     Dates: start: 201902
  3. ZEJULA [Suspect]
     Active Substance: NIRAPARIB
     Indication: ENDOMETRIAL NEOPLASM
     Dosage: 300 MG, QD
     Route: 048
     Dates: start: 20171012

REACTIONS (13)
  - Fluid retention [Unknown]
  - Emotional distress [Unknown]
  - Post procedural inflammation [Unknown]
  - Platelet count decreased [Not Recovered/Not Resolved]
  - Product use in unapproved indication [Unknown]
  - Arthropathy [Recovered/Resolved]
  - Hypertension [Not Recovered/Not Resolved]
  - Hip arthroplasty [Recovered/Resolved]
  - Arthralgia [Not Recovered/Not Resolved]
  - Femur fracture [Unknown]
  - Joint dislocation [Unknown]
  - Lymphoma [Unknown]
  - Nausea [Recovered/Resolved]

NARRATIVE: CASE EVENT DATE: 20171012
